FAERS Safety Report 13603435 (Version 1)
Quarter: 2017Q2

REPORT INFORMATION
  Report Type: Spontaneous
  Country: US (occurrence: US)
  Receive Date: 20170601
  Receipt Date: 20170601
  Transmission Date: 20170912
  Serious: Yes (Hospitalization)
  Sender: FDA-Public Use
  Company Number: US-OTSUKA-2016_021497

PATIENT
  Age: 56 Year
  Sex: Female

DRUGS (3)
  1. SAMSCA [Suspect]
     Indication: HYPONATRAEMIA
     Dosage: 30 MG, QD
     Route: 048
     Dates: start: 20160918, end: 20160923
  2. SAMSCA [Suspect]
     Indication: INAPPROPRIATE ANTIDIURETIC HORMONE SECRETION
  3. SAMSCA [Suspect]
     Indication: BLOOD OSMOLARITY DECREASED
     Dosage: 15 MG, TIW
     Route: 048
     Dates: start: 20160902, end: 20160917

REACTIONS (3)
  - Blood sodium increased [Unknown]
  - Drug prescribing error [Unknown]
  - Inappropriate schedule of drug administration [Unknown]

NARRATIVE: CASE EVENT DATE: 20160902
